FAERS Safety Report 9710717 (Version 1)
Quarter: 2013Q4

REPORT INFORMATION
  Report Type: Spontaneous
  Country: US (occurrence: US)
  Receive Date: 20131126
  Receipt Date: 20131126
  Transmission Date: 20140711
  Serious: No
  Sender: FDA-Public Use
  Company Number: US-BRISTOL-MYERS SQUIBB COMPANY-18943761

PATIENT
  Age: 66 Year
  Sex: Male
  Weight: 112.01 kg

DRUGS (6)
  1. BYDUREON [Suspect]
     Indication: TYPE 2 DIABETES MELLITUS
     Route: 058
  2. BYETTA [Suspect]
     Indication: TYPE 2 DIABETES MELLITUS
     Route: 058
  3. LANTUS [Concomitant]
  4. INSULIN [Concomitant]
  5. METFORMIN [Concomitant]
  6. GLIPIZIDE [Concomitant]

REACTIONS (2)
  - Overdose [Unknown]
  - Decreased appetite [Not Recovered/Not Resolved]
